FAERS Safety Report 5205543-9 (Version None)
Quarter: 2006Q4

REPORT INFORMATION
  Report Type: 
  Country: None (occurrence: None)
  Receive Date: 20061027
  Receipt Date: 20060705
  Transmission Date: 20070319
  Serious: No
  Sender: FDA-Public Use
  Company Number: 200615665US

PATIENT
  Age: 55 Year
  Sex: Male

DRUGS (10)
  1. KETEK [Suspect]
     Indication: UPPER RESPIRATORY TRACT INFECTION
     Dosage: 400 MG QD PO
     Route: 048
     Dates: start: 20060614, end: 20060619
  2. KETEK [Suspect]
     Indication: UPPER RESPIRATORY TRACT INFECTION
     Dosage: 800 MG QD
     Dates: start: 20060523, end: 20060528
  3. ASPIRIN [Concomitant]
  4. DIOVAN [Concomitant]
  5. PLAVIX [Concomitant]
  6. COREG [Concomitant]
  7. ACCUPRIL [Concomitant]
  8. ATORVASTATIN CALCIUM (LIPITOR) [Concomitant]
  9. NEXIUM [Concomitant]
  10. ZETIA [Concomitant]

REACTIONS (2)
  - DIPLOPIA [None]
  - VISION BLURRED [None]
